FAERS Safety Report 4591353-2 (Version None)
Quarter: 2005Q1

REPORT INFORMATION
  Report Type: 
  Country: None (occurrence: None)
  Receive Date: 20050222
  Receipt Date: 20040205
  Transmission Date: 20050727
  Serious: Yes (Hospitalization, Other)
  Sender: FDA-Public Use
  Company Number: 2005S1000460

PATIENT
  Age: 54 Year
  Sex: Male

DRUGS (5)
  1. CLOZAPINE [Suspect]
     Indication: SCHIZOPHRENIA
     Dosage: 100MG GAM AND 200MG HS, ORAL
     Route: 048
     Dates: end: 20050114
  2. ATENOLOL [Concomitant]
  3. PAROXETINE HCL [Concomitant]
  4. QUETIAPINE FUMARATE [Concomitant]
  5. GEMFIBROZIL [Concomitant]

REACTIONS (6)
  - BLOOD CREATININE INCREASED [None]
  - CONFUSIONAL STATE [None]
  - DIABETIC KETOACIDOSIS [None]
  - PNEUMONIA STREPTOCOCCAL [None]
  - SEPSIS [None]
  - WHITE BLOOD CELL COUNT DECREASED [None]
